FAERS Safety Report 13676062 (Version 2)
Quarter: 2017Q2

REPORT INFORMATION
  Report Type: Spontaneous
  Country: IT (occurrence: IT)
  Receive Date: 20170622
  Receipt Date: 20170630
  Transmission Date: 20170830
  Serious: Yes (Hospitalization)
  Sender: FDA-Public Use
  Company Number: IT-BAXTER-2017BAX024557

PATIENT
  Age: 61 Year
  Sex: Female
  Weight: 69 kg

DRUGS (8)
  1. VANCOTEX [Suspect]
     Active Substance: VANCOMYCIN HYDROCHLORIDE
     Dosage: DOSE RE-INTRODUCED, DOSAGE FORM: POWDER FOR SOLUTION FOR INTRAVENOUS INFUSION AND ORAL SOLUTION VIAL
     Route: 042
  2. FLUCONAZOLO KEIRONPHARMA [Suspect]
     Active Substance: FLUCONAZOLE
     Dosage: DOSE RE-INTRODUCED, STRENGTH: 400 MG/200 ML (200 ML BAG), AT 08 AM
     Route: 065
  3. METRONIDAZOLO BAXTER S.P.A. [Suspect]
     Active Substance: METRONIDAZOLE
     Dosage: DOSE RE-INTRODUCED, DOSAGE FORM: SOLUTION FOR INTRAVENOUS INFUSION 100 ML VIAL, 0.5 G/ 100 ML, AT 08
     Route: 042
  4. FLUCONAZOLO KEIRONPHARMA [Suspect]
     Active Substance: FLUCONAZOLE
     Indication: ANTIBIOTIC THERAPY
     Dosage: STRENGTH: 400 MG/200 ML (200 ML BAG)
     Route: 065
     Dates: start: 20170606
  5. METRONIDAZOLO BAXTER S.P.A. [Suspect]
     Active Substance: METRONIDAZOLE
     Indication: ANTIBIOTIC THERAPY
     Dosage: DOSAGE FORM: SOLUTION FOR INTRAVENOUS INFUSION 100 ML VIAL, 0.5 G/ 100 ML
     Route: 042
     Dates: start: 20170531
  6. VANCOTEX [Suspect]
     Active Substance: VANCOMYCIN HYDROCHLORIDE
     Indication: ANTIBIOTIC THERAPY
     Dosage: DOSAGE FORM: POWDER FOR SOLUTION FOR INTRAVENOUS INFUSION AND ORAL SOLUTION VIAL, 1VIAL 500 MG
     Route: 042
     Dates: start: 20170606
  7. AMIKAN [Suspect]
     Active Substance: AMIKACIN SULFATE
     Dosage: DOSE RE-INTRODUCED, STRENGTH: 500 MG/2 ML, SOLUTION FOR INJECTION FOR INTRAMUSCULAR USE, 2 ML VIAL,
     Route: 042
  8. AMIKAN [Suspect]
     Active Substance: AMIKACIN SULFATE
     Indication: ANTIBIOTIC THERAPY
     Dosage: STRENGTH: 500 MG/2 ML, SOLUTION FOR INJECTION FOR INTRAMUSCULAR USE, 2 ML VIAL
     Route: 042
     Dates: start: 20170607

REACTIONS (3)
  - Pain in extremity [Recovering/Resolving]
  - Peripheral swelling [Recovering/Resolving]
  - Flushing [Recovering/Resolving]

NARRATIVE: CASE EVENT DATE: 20170608
